FAERS Safety Report 4635163-6 (Version None)
Quarter: 2005Q2

REPORT INFORMATION
  Report Type: 
  Country: None (occurrence: None)
  Receive Date: 20050414
  Receipt Date: 20040928
  Transmission Date: 20051028
  Serious: Yes (Other)
  Sender: FDA-Public Use
  Company Number: FR-GLAXOSMITHKLINE-B0347372A

PATIENT
  Age: 33 Year
  Sex: Male
  Weight: 88 kg

DRUGS (1)
  1. ZYBAN [Suspect]
     Indication: SMOKING CESSATION THERAPY
     Dosage: 150MG UNKNOWN
     Dates: start: 20040818, end: 20040907

REACTIONS (5)
  - ANOREXIA [None]
  - DIPLOPIA [None]
  - IIIRD NERVE PARALYSIS [None]
  - NYSTAGMUS [None]
  - VERTIGO [None]
